FAERS Safety Report 24132312 (Version 1)
Quarter: 2024Q3

REPORT INFORMATION
  Report Type: Spontaneous
  Country: CA (occurrence: CA)
  Receive Date: 20240724
  Receipt Date: 20240724
  Transmission Date: 20241017
  Serious: Yes (Other)
  Sender: SANOFI AVENTIS
  Company Number: None

PATIENT
  Age: 76 Year
  Sex: Male
  Weight: 54 kg

DRUGS (6)
  1. ADMELOG [Suspect]
     Active Substance: INSULIN LISPRO
     Indication: Type 2 diabetes mellitus
     Dosage: 8 U, QD
     Route: 058
  2. ADMELOG [Suspect]
     Active Substance: INSULIN LISPRO
     Dosage: 4 U, QD
     Route: 058
  3. ADMELOG [Suspect]
     Active Substance: INSULIN LISPRO
     Dosage: 5 U, QD
     Route: 058
  4. JARDIANCE [Concomitant]
     Active Substance: EMPAGLIFLOZIN
     Dosage: UNK
  5. METFORMIN [Concomitant]
     Active Substance: METFORMIN HYDROCHLORIDE
     Dosage: UNK
  6. OZEMPIC [Concomitant]
     Active Substance: SEMAGLUTIDE
     Dosage: UNK

REACTIONS (3)
  - Wheezing [Recovered/Resolved]
  - Hyperglycaemia [Recovered/Resolved]
  - Product substitution issue [Unknown]
